FAERS Safety Report 7693155-7 (Version None)
Quarter: 2011Q3

REPORT INFORMATION
  Report Type: 
  Country: None (occurrence: None)
  Receive Date: 20110816
  Receipt Date: 20110805
  Transmission Date: 20111222
  Serious: Yes (Hospitalization)
  Sender: FDA-Public Use
  Company Number: LEO-2011-00643

PATIENT
  Age: 85 Year
  Sex: Female
  Weight: 85 kg

DRUGS (6)
  1. FUROSEMIDE [Suspect]
     Indication: HYPERTENSION
  2. BISOPROLOL FUMARATE [Concomitant]
  3. CORTANCYL (PREDNISONE) [Concomitant]
  4. INNOHEP [Suspect]
     Indication: PRODUCT USED FOR UNKNOWN INDICATION
     Dosage: SUBCUTANEOUS
     Route: 058
     Dates: start: 20110101, end: 20110601
  5. CORDARONE [Concomitant]
  6. KEPRA (LEVETIRACETIRACETAM) [Concomitant]

REACTIONS (15)
  - VITAMIN C DECREASED [None]
  - SERUM FERRITIN INCREASED [None]
  - BREAST HAEMATOMA [None]
  - OVERDOSE [None]
  - VITAMIN B6 DECREASED [None]
  - VITAMIN B1 DECREASED [None]
  - CONDITION AGGRAVATED [None]
  - RENAL CYST [None]
  - METRORRHAGIA [None]
  - RENAL ATROPHY [None]
  - HAEMOGLOBIN DECREASED [None]
  - BLOOD ALBUMIN DECREASED [None]
  - RENAL FAILURE CHRONIC [None]
  - HAEMATURIA [None]
  - HAEMATOMA [None]
